FAERS Safety Report 9290740 (Version 3)
Quarter: 2013Q3

REPORT INFORMATION
  Report Type: Report from Study
  Country: BR (occurrence: BR)
  Receive Date: 20130515
  Receipt Date: 20130822
  Transmission Date: 20140515
  Serious: Yes (Other)
  Sender: FDA-Public Use
  Company Number: PHHY2013BR046842

PATIENT
  Sex: Male

DRUGS (3)
  1. RITALINA [Suspect]
     Indication: ATTENTION DEFICIT/HYPERACTIVITY DISORDER
     Dosage: 0.5 DF, DAILY
     Route: 048
     Dates: start: 201302
  2. RITALINA [Suspect]
     Dosage: 0.5 DF, DAILY
     Route: 048
     Dates: start: 20130506
  3. NEULEPTIL [Concomitant]
     Indication: INSOMNIA
     Dosage: 30 DRP, QD (30 DROPS EVERY NIGHT QD)
     Dates: start: 201208

REACTIONS (17)
  - Self injurious behaviour [Recovered/Resolved]
  - Mental disorder [Recovered/Resolved]
  - Memory impairment [Recovered/Resolved]
  - Crying [Recovered/Resolved]
  - Irritability [Recovered/Resolved]
  - Nervousness [Recovered/Resolved]
  - Aggression [Recovered/Resolved]
  - Negativism [Recovered/Resolved]
  - Disorientation [Recovered/Resolved]
  - Movement disorder [Recovered/Resolved]
  - Pain [Recovered/Resolved]
  - Incorrect dose administered [Recovered/Resolved]
  - Drug administered to patient of inappropriate age [Recovered/Resolved]
  - Agitation [Recovered/Resolved]
  - Disturbance in attention [Recovered/Resolved]
  - Learning disorder [Recovered/Resolved]
  - Drug ineffective [Recovered/Resolved]
